FAERS Safety Report 10175907 (Version 1)
Quarter: 2014Q2

REPORT INFORMATION
  Report Type: Report from Study
  Country: NL (occurrence: NL)
  Receive Date: 20140516
  Receipt Date: 20140516
  Transmission Date: 20141212
  Serious: Yes (Hospitalization, Other)
  Sender: FDA-Public Use
  Company Number: PHHY2014NL056847

PATIENT
  Age: 59 Year
  Sex: Female

DRUGS (2)
  1. SANDOSTATINE LAR [Suspect]
     Indication: MACULAR OEDEMA
     Dosage: 30 MG/2ML, ONCE EVERY 4 WEEKS
     Route: 030
  2. SANDOSTATINE LAR [Suspect]
     Indication: OFF LABEL USE

REACTIONS (2)
  - Hip fracture [Not Recovered/Not Resolved]
  - Fall [Unknown]
